FAERS Safety Report 15903786 (Version 1)
Quarter: 2019Q1

REPORT INFORMATION
  Report Type: Spontaneous
  Country: CA (occurrence: CA)
  Receive Date: 20190203
  Receipt Date: 20190203
  Transmission Date: 20190417
  Serious: Yes (Other)
  Sender: FDA-Public Use
  Company Number: CA-CONCORDIA PHARMACEUTICALS INC.-MAPI_00010554

PATIENT
  Age: 68 Year
  Sex: Female

DRUGS (12)
  1. HUMIRA [Suspect]
     Active Substance: ADALIMUMAB
     Indication: RHEUMATOID ARTHRITIS
     Route: 065
  2. PERCOCET [Concomitant]
     Active Substance: ACETAMINOPHEN\OXYCODONE HYDROCHLORIDE
  3. XELJANZ [Suspect]
     Active Substance: TOFACITINIB CITRATE
     Indication: RHEUMATOID ARTHRITIS
     Route: 048
     Dates: start: 20150825
  4. SENOKOT [Concomitant]
     Active Substance: SENNOSIDES
  5. PLAQUENIL [Suspect]
     Active Substance: HYDROXYCHLOROQUINE SULFATE
     Indication: RHEUMATOID ARTHRITIS
     Route: 048
  6. SIMPONI [Suspect]
     Active Substance: GOLIMUMAB
     Indication: RHEUMATOID ARTHRITIS
     Route: 065
  7. FLEXERIL [Concomitant]
     Active Substance: CYCLOBENZAPRINE HYDROCHLORIDE
  8. ENBREL [Suspect]
     Active Substance: ETANERCEPT
     Route: 058
  9. CYCLOBENZAPRINE HYDROCHLORIDE. [Concomitant]
     Active Substance: CYCLOBENZAPRINE HYDROCHLORIDE
  10. COVERSYL [Concomitant]
     Active Substance: PERINDOPRIL
  11. LOVASTATIN. [Concomitant]
     Active Substance: LOVASTATIN
  12. ATIVAN [Concomitant]
     Active Substance: LORAZEPAM

REACTIONS (35)
  - Disease progression [Not Recovered/Not Resolved]
  - Impaired healing [Unknown]
  - Arthropathy [Unknown]
  - Myalgia [Unknown]
  - Fatigue [Not Recovered/Not Resolved]
  - Swelling [Unknown]
  - Loss of personal independence in daily activities [Not Recovered/Not Resolved]
  - Wrist deformity [Not Recovered/Not Resolved]
  - Hand deformity [Unknown]
  - Muscle spasms [Unknown]
  - Depressed mood [Unknown]
  - Rheumatoid arthritis [Recovering/Resolving]
  - Foot deformity [Not Recovered/Not Resolved]
  - Peripheral swelling [Unknown]
  - Hypokinesia [Unknown]
  - Fine motor skill dysfunction [Unknown]
  - Back pain [Unknown]
  - Crying [Unknown]
  - Cerebrovascular accident [Not Recovered/Not Resolved]
  - Hepatitis C [Unknown]
  - Dry eye [Not Recovered/Not Resolved]
  - Musculoskeletal disorder [Not Recovered/Not Resolved]
  - Disability [Not Recovered/Not Resolved]
  - Gait disturbance [Not Recovered/Not Resolved]
  - Arthralgia [Unknown]
  - Weight decreased [Not Recovered/Not Resolved]
  - Drug ineffective [Unknown]
  - Nodule [Recovering/Resolving]
  - Dyspnoea [Not Recovered/Not Resolved]
  - Shoulder deformity [Unknown]
  - Joint swelling [Unknown]
  - Muscle atrophy [Not Recovered/Not Resolved]
  - Cataract [Not Recovered/Not Resolved]
  - Musculoskeletal pain [Unknown]
  - Sleep disorder due to a general medical condition [Unknown]

NARRATIVE: CASE EVENT DATE: 201401
